FAERS Safety Report 9355576 (Version 1)
Quarter: 2013Q2

REPORT INFORMATION
  Report Type: Spontaneous
  Country: US (occurrence: US)
  Receive Date: 20130619
  Receipt Date: 20130619
  Transmission Date: 20140414
  Serious: No
  Sender: FDA-Public Use
  Company Number: US-BAYER-2013-075250

PATIENT
  Age: 77 Year
  Sex: Male
  Weight: 73.47 kg

DRUGS (3)
  1. ALEVE CAPLET [Suspect]
     Indication: ANALGESIC THERAPY
     Dosage: 1 DF, UNK
     Route: 048
  2. ALEVE CAPLET [Suspect]
     Indication: ANALGESIC THERAPY
     Dosage: 1 DF, BID
  3. BAYER ASPIRIN REGIMEN REGULAR 325 MG STRENGTH [Concomitant]

REACTIONS (2)
  - Incorrect drug administration duration [None]
  - Incorrect drug administration duration [None]
